FAERS Safety Report 8214804-0 (Version None)
Quarter: 2012Q1

REPORT INFORMATION
  Report Type: 
  Country: None (occurrence: None)
  Receive Date: 20120316
  Receipt Date: 20120307
  Transmission Date: 20120608
  Serious: Yes (Other)
  Sender: FDA-Public Use
  Company Number: BR-JNJFOC-20120305952

PATIENT
  Age: 73 Year
  Sex: Female
  Weight: 75 kg

DRUGS (9)
  1. HALDOL [Suspect]
     Indication: PSYCHOTIC DISORDER
     Route: 048
     Dates: start: 20120210
  2. HALDOL [Suspect]
     Route: 048
     Dates: start: 20111001, end: 20120209
  3. ATENOLOL [Concomitant]
     Indication: HYPERTENSION
     Route: 048
     Dates: start: 20110101
  4. CLUSIVOL [Concomitant]
     Indication: VITAMIN SUPPLEMENTATION
     Route: 065
     Dates: start: 20120101
  5. LOSARTAN POTASSIUM [Concomitant]
     Indication: HYPERTENSION
     Route: 048
     Dates: start: 20110101
  6. HYDROCHLOROTHIAZIDE [Concomitant]
     Indication: DIURETIC THERAPY
     Route: 048
     Dates: start: 20110101
  7. AMLODIPINE [Concomitant]
     Indication: HYPERTENSION
     Route: 048
     Dates: start: 20110101
  8. A MULTIVITAMIN [Concomitant]
     Indication: VITAMIN SUPPLEMENTATION
     Route: 048
     Dates: start: 20120101
  9. OMEPRAZOLE [Concomitant]
     Indication: HYPERTENSION
     Route: 048
     Dates: start: 20110101

REACTIONS (7)
  - TONGUE DISORDER [None]
  - DEPRESSED MOOD [None]
  - DYSPNOEA [None]
  - TREMOR [None]
  - COUGH [None]
  - CHEST DISCOMFORT [None]
  - DYSPHAGIA [None]
